FAERS Safety Report 8484035-8 (Version None)
Quarter: 2012Q2

REPORT INFORMATION
  Report Type: 
  Country: None (occurrence: None)
  Receive Date: 20120627
  Receipt Date: 20120627
  Transmission Date: 20120825
  Serious: Yes (Hospitalization)
  Sender: FDA-Public Use
  Company Number: None

PATIENT
  Sex: Female
  Weight: 48.2 kg

DRUGS (2)
  1. PEMETREXED [Suspect]
     Indication: NON-SMALL CELL LUNG CANCER
     Dosage: 500MG/M2 EVERY 3 WEEKS IV
     Route: 042
     Dates: start: 20120516, end: 20120516
  2. ERLOTINIB HYDROCHLORIDE [Suspect]
     Indication: NON-SMALL CELL LUNG CANCER
     Dosage: 150MG DAYS 2-17 OF 21D CYC PO
     Route: 048
     Dates: start: 20120517

REACTIONS (5)
  - PNEUMONIA [None]
  - MENTAL STATUS CHANGES [None]
  - LUNG INFILTRATION [None]
  - ASTHENIA [None]
  - HAEMOGLOBIN DECREASED [None]
